FAERS Safety Report 10977884 (Version 1)
Quarter: 2015Q1

REPORT INFORMATION
  Report Type: Spontaneous
  Country: US (occurrence: None)
  Receive Date: 20150331
  Receipt Date: 20150331
  Transmission Date: 20150721
  Serious: Yes (Other)
  Sender: FDA-Public Use
  Company Number: US-H14001-15-00500

PATIENT
  Sex: Female

DRUGS (1)
  1. CIPROFLOXACIN (CIPROFLOXACIN) (UNKNOWN) (CIPROFLOXACIN) [Suspect]
     Active Substance: CIPROFLOXACIN
     Indication: URINARY TRACT INFECTION
     Dosage: 1000 MG (500 MG, 2 IN 1 D)
     Dates: start: 20141101, end: 20141110

REACTIONS (10)
  - Tension headache [None]
  - Insomnia [None]
  - Skin burning sensation [None]
  - Hypoaesthesia [None]
  - Panic attack [None]
  - Balance disorder [None]
  - Dizziness [None]
  - Fatigue [None]
  - Asthenia [None]
  - Visual impairment [None]
